FAERS Safety Report 21964635 (Version 1)
Quarter: 2023Q1

REPORT INFORMATION
  Report Type: Spontaneous
  Country: US (occurrence: US)
  Receive Date: 20230207
  Receipt Date: 20230207
  Transmission Date: 20230417
  Serious: No
  Sender: FDA-Public Use
  Company Number: US-PURDUE PHARMA-USA-2022-0296825

PATIENT
  Sex: Female

DRUGS (1)
  1. BUTRANS [Suspect]
     Active Substance: BUPRENORPHINE
     Indication: Leukaemia
     Dosage: 10 MCG/HR WEEKLY
     Route: 062
     Dates: start: 20220921

REACTIONS (3)
  - Illness [Unknown]
  - Product adhesion issue [Unknown]
  - Wrong technique in product usage process [Unknown]
